FAERS Safety Report 13359356 (Version 2)
Quarter: 2018Q2

REPORT INFORMATION
  Report Type: Report from Study
  Country: US (occurrence: US)
  Receive Date: 20170322
  Receipt Date: 20180428
  Transmission Date: 20180711
  Serious: No
  Sender: FDA-Public Use
  Company Number: PHEH2017US008467

PATIENT
  Age: 49 Year
  Sex: Female
  Weight: 58.96 kg

DRUGS (1)
  1. COSENTYX [Suspect]
     Active Substance: SECUKINUMAB
     Indication: ANKYLOSING SPONDYLITIS
     Dosage: 150 MG, QMO (EVERY 4 WEEKS)
     Route: 058
     Dates: start: 20161108

REACTIONS (2)
  - Pharyngitis streptococcal [Unknown]
  - Malaise [Unknown]

NARRATIVE: CASE EVENT DATE: 20170319
